FAERS Safety Report 4622386-5 (Version None)
Quarter: 2005Q1

REPORT INFORMATION
  Report Type: 
  Country: None (occurrence: None)
  Receive Date: 20050328
  Receipt Date: 20050317
  Transmission Date: 20050727
  Serious: Yes (Hospitalization)
  Sender: FDA-Public Use
  Company Number: 2005047095

PATIENT
  Age: 61 Year
  Sex: Male
  Weight: 70 kg

DRUGS (7)
  1. LIPITOR [Suspect]
     Indication: BLOOD CHOLESTEROL INCREASED
     Dosage: 10 MG (10 MG, 1 IN 1 D), ORAL
     Route: 048
     Dates: start: 20040916, end: 20041222
  2. PERINDOPRIL (PERIDOPRIL) [Suspect]
     Indication: BLOOD PRESSURE INCREASED
     Dosage: 4 MG, (4 MG, 1 IN 1 D), ORAL
     Route: 048
     Dates: start: 20040820, end: 20041221
  3. CALCIUM CARBONATE (CALCIUM CARBONATE) [Concomitant]
  4. TADALAFIL (TADALAFIL) [Concomitant]
  5. BECLOMETHASONE DIPROPIONATE [Concomitant]
  6. CEPHALEXIN [Concomitant]
  7. TRIMETHOPRIM [Concomitant]

REACTIONS (1)
  - GUILLAIN-BARRE SYNDROME [None]
